FAERS Safety Report 17508795 (Version 1)
Quarter: 2020Q1

REPORT INFORMATION
  Report Type: Spontaneous
  Country: US (occurrence: US)
  Receive Date: 20200306
  Receipt Date: 20200306
  Transmission Date: 20200409
  Serious: No
  Sender: FDA-Public Use
  Company Number: US-JNJFOC-20200244047

PATIENT
  Sex: Male

DRUGS (1)
  1. STELARA [Suspect]
     Active Substance: USTEKINUMAB
     Indication: PRODUCT USED FOR UNKNOWN INDICATION
     Dosage: PATIENT HAS BEEN ON STELARA FOR APPROXIMATELY 2 YEARS.
     Route: 058
     Dates: start: 201804

REACTIONS (1)
  - Therapeutic response decreased [Not Recovered/Not Resolved]
